FAERS Safety Report 9125778 (Version 1)
Quarter: 2013Q1

REPORT INFORMATION
  Report Type: Spontaneous
  Country: GB (occurrence: GB)
  Receive Date: 20130228
  Receipt Date: 20130228
  Transmission Date: 20140127
  Serious: Yes (Hospitalization)
  Sender: FDA-Public Use
  Company Number: GB-MYLANLABS-2013S1003479

PATIENT
  Age: 79 Year
  Sex: Male

DRUGS (12)
  1. PIOGLITAZONE [Suspect]
     Indication: TYPE 2 DIABETES MELLITUS
     Route: 048
     Dates: start: 20120501, end: 20130120
  2. ASPIRIN [Concomitant]
     Indication: PRODUCT USED FOR UNKNOWN INDICATION
  3. ATORVASTATIN [Concomitant]
     Indication: PRODUCT USED FOR UNKNOWN INDICATION
  4. DIPYRIDAMOLE [Concomitant]
     Indication: PRODUCT USED FOR UNKNOWN INDICATION
  5. DOXAZOSIN [Concomitant]
     Indication: PRODUCT USED FOR UNKNOWN INDICATION
  6. FERROUS FUMARATE [Concomitant]
     Indication: PRODUCT USED FOR UNKNOWN INDICATION
  7. HYDROXOCOBALAMIN [Concomitant]
     Indication: PRODUCT USED FOR UNKNOWN INDICATION
  8. METFORMIN [Concomitant]
     Indication: PRODUCT USED FOR UNKNOWN INDICATION
  9. PERINDOPRIL [Concomitant]
     Indication: PRODUCT USED FOR UNKNOWN INDICATION
  10. SYMBICORT [Concomitant]
     Indication: PRODUCT USED FOR UNKNOWN INDICATION
  11. TERBUTALINE [Concomitant]
     Indication: PRODUCT USED FOR UNKNOWN INDICATION
  12. TILDIEM [Concomitant]
     Indication: PRODUCT USED FOR UNKNOWN INDICATION

REACTIONS (5)
  - Cardiac failure [Not Recovered/Not Resolved]
  - Dyspnoea [Unknown]
  - Poverty of speech [Unknown]
  - Productive cough [Unknown]
  - Tricuspid valve incompetence [Unknown]
